FAERS Safety Report 6664046-5 (Version None)
Quarter: 2010Q2

REPORT INFORMATION
  Report Type: 
  Country: None (occurrence: None)
  Receive Date: 20100401
  Receipt Date: 20100326
  Transmission Date: 20101027
  Serious: Yes (Other)
  Sender: FDA-Public Use
  Company Number: A0852193A

PATIENT
  Age: 64 Year
  Sex: Female

DRUGS (4)
  1. ADVAIR DISKUS 100/50 [Suspect]
     Indication: ASTHMA
     Dosage: 1PUFF TWICE PER DAY
     Route: 055
  2. PROAIR HFA [Suspect]
     Indication: ASTHMA
     Route: 055
     Dates: start: 20100118, end: 20100118
  3. TRAMADOL HCL [Concomitant]
  4. PREDNISONE TAB [Concomitant]

REACTIONS (10)
  - ABDOMINAL DISTENSION [None]
  - BURNING SENSATION [None]
  - DYSPNOEA [None]
  - GASTRIC DISORDER [None]
  - GASTRIC ULCER [None]
  - OESOPHAGEAL PAIN [None]
  - ORAL DISCOMFORT [None]
  - ORAL DISORDER [None]
  - SQUAMOUS CELL CARCINOMA [None]
  - SYPHILIS [None]
